FAERS Safety Report 20018346 (Version 3)
Quarter: 2022Q3

REPORT INFORMATION
  Report Type: Spontaneous
  Country: JP (occurrence: JP)
  Receive Date: 20211101
  Receipt Date: 20220701
  Transmission Date: 20221027
  Serious: Yes (Hospitalization, Other)
  Sender: FDA-Public Use
  Company Number: JP-ASTELLAS-2021JP019636

PATIENT
  Age: 9 Year
  Sex: Female
  Weight: 53 kg

DRUGS (16)
  1. MICAFUNGIN SODIUM [Suspect]
     Active Substance: MICAFUNGIN SODIUM
     Indication: Febrile neutropenia
     Dosage: REFER TO NARRATIVE
     Route: 041
     Dates: start: 20191117, end: 20191127
  2. MICAFUNGIN SODIUM [Suspect]
     Active Substance: MICAFUNGIN SODIUM
     Indication: Streptococcal bacteraemia
  3. METHOTREXATE [Suspect]
     Active Substance: METHOTREXATE
     Indication: Acute myeloid leukaemia
     Route: 050
     Dates: start: 20191030, end: 20191030
  4. CYTARABINE [Suspect]
     Active Substance: CYTARABINE
     Indication: Acute myeloid leukaemia
     Route: 050
     Dates: start: 20191030, end: 20191030
  5. CYTARABINE [Suspect]
     Active Substance: CYTARABINE
     Route: 041
     Dates: start: 20191102, end: 20191106
  6. HYDROCORTONE [Suspect]
     Active Substance: HYDROCORTISONE
     Indication: Acute myeloid leukaemia
     Route: 050
     Dates: start: 20191030, end: 20191030
  7. ETOPOSIDE [Suspect]
     Active Substance: ETOPOSIDE
     Indication: Acute myeloid leukaemia
     Route: 041
     Dates: start: 20191030, end: 20191101
  8. MITOXANTRONE [Suspect]
     Active Substance: MITOXANTRONE HYDROCHLORIDE
     Indication: Acute myeloid leukaemia
     Route: 041
     Dates: start: 20191102, end: 20191104
  9. MAXIPIME [Concomitant]
     Active Substance: CEFEPIME HYDROCHLORIDE
     Indication: Febrile neutropenia
     Route: 041
     Dates: start: 20191112, end: 20191114
  10. MAXIPIME [Concomitant]
     Active Substance: CEFEPIME HYDROCHLORIDE
     Indication: Streptococcal bacteraemia
     Dosage: 0.5 G, EVERY 8 HOURS
     Route: 041
     Dates: start: 20191125, end: 20191127
  11. MAXIPIME [Concomitant]
     Active Substance: CEFEPIME HYDROCHLORIDE
     Indication: Meningitis
     Dosage: 2 G/DAY, EVERY 8 HOURS
     Route: 041
     Dates: start: 20191127, end: 20200108
  12. KENKETU GLOVENIN-I [Concomitant]
     Active Substance: HUMAN IMMUNOGLOBULIN G
     Indication: Bacteraemia
     Route: 041
     Dates: start: 20191113, end: 20191113
  13. VANCOMYCIN [Concomitant]
     Active Substance: VANCOMYCIN
     Indication: Febrile neutropenia
     Dosage: 0.75 G/DAY, 4 TIMES DAILY
     Route: 041
     Dates: start: 20191114, end: 20191122
  14. VANCOMYCIN [Concomitant]
     Active Substance: VANCOMYCIN
     Indication: Streptococcal bacteraemia
     Dosage: 0.85 G/DAY, 4 TIMES DAILY
     Route: 041
     Dates: start: 20191129, end: 20200108
  15. MEROPENEM [Concomitant]
     Active Substance: MEROPENEM
     Indication: Febrile neutropenia
     Dosage: 1 G/DAY, EVERY 8 HOURS
     Route: 041
     Dates: start: 20191114, end: 20191124
  16. MEROPENEM [Concomitant]
     Active Substance: MEROPENEM
     Indication: Streptococcal bacteraemia

REACTIONS (3)
  - Pancytopenia [Recovered/Resolved]
  - Meningitis [Recovered/Resolved]
  - Off label use [Unknown]

NARRATIVE: CASE EVENT DATE: 20191008
